FAERS Safety Report 12169198 (Version 3)
Quarter: 2016Q1

REPORT INFORMATION
  Report Type: Spontaneous
  Country: US (occurrence: US)
  Receive Date: 20160310
  Receipt Date: 20160325
  Transmission Date: 20160526
  Serious: Yes (Hospitalization, Other)
  Sender: FDA-Public Use
  Company Number: US-BAYER-2016-047292

PATIENT
  Age: 37 Year
  Sex: Female
  Weight: 79 kg

DRUGS (1)
  1. MIRENA [Suspect]
     Active Substance: LEVONORGESTREL
     Indication: CONTRACEPTION
     Dosage: 20 MCG/24HR, CONT
     Route: 015
     Dates: start: 20110808, end: 20131003

REACTIONS (6)
  - Device issue [None]
  - Menstrual disorder [None]
  - Embedded device [None]
  - Internal haemorrhage [None]
  - Device difficult to use [None]
  - Abdominal pain lower [None]

NARRATIVE: CASE EVENT DATE: 20131003
